FAERS Safety Report 4957884-8 (Version None)
Quarter: 2006Q1

REPORT INFORMATION
  Report Type: 
  Country: None (occurrence: None)
  Receive Date: 20060324
  Receipt Date: 20060313
  Transmission Date: 20060701
  Serious: Yes (Hospitalization)
  Sender: FDA-Public Use
  Company Number: 2006035532

PATIENT
  Age: 82 Year
  Sex: Female

DRUGS (9)
  1. LYRICA [Suspect]
     Indication: NEURALGIA
     Dosage: 300 MG (150 MG, 2 IN 1 D), ORAL
     Route: 048
     Dates: end: 20050201
  2. ASPIRIN [Concomitant]
  3. ACETAMINOPHEN [Concomitant]
  4. MOVICOL (MACROGOL, POTASSIUM CHLORIDE, SODIUM BICARBONATE, SODIUM CHLO [Concomitant]
  5. CODEINE PHOSPHATE (CODEINE PHOSPHATE) [Concomitant]
  6. ADCAL-D3 (CALCIUM CARBONATE, COLECALCIFEROL) [Concomitant]
  7. OMEPRAZOLE [Concomitant]
  8. LACTULOSE [Concomitant]
  9. ALENDRONATE SODIUM [Concomitant]

REACTIONS (2)
  - BRADYCARDIA [None]
  - FALL [None]
